FAERS Safety Report 5200170-1 (Version None)
Quarter: 2007Q1

REPORT INFORMATION
  Report Type: 
  Country: None (occurrence: None)
  Receive Date: 20070103
  Receipt Date: 20061220
  Transmission Date: 20070707
  Serious: Yes (Hospitalization)
  Sender: FDA-Public Use
  Company Number: 2006US001672

PATIENT
  Age: 36 Year
  Sex: Male

DRUGS (9)
  1. PROGRAF [Suspect]
     Indication: PROPHYLAXIS AGAINST TRANSPLANT REJECTION
     Dosage: 4 MG, BID, ORAL
     Route: 048
     Dates: start: 20051012
  2. MYCOPHENOLATE MOFETIL [Suspect]
     Indication: PROPHYLAXIS AGAINST TRANSPLANT REJECTION
     Dosage: 1000 MG, BID, ORAL
     Route: 048
     Dates: start: 20051011, end: 20060717
  3. PREDNISONE TAB [Suspect]
     Indication: PROPHYLAXIS AGAINST TRANSPLANT REJECTION
     Dosage: 5 MG, UID/QD, ORAL
     Route: 048
     Dates: start: 20051012
  4. BACTRIM DS [Concomitant]
  5. LASIX [Concomitant]
  6. MULTIVITAMIN [Concomitant]
  7. ASPIRIN [Concomitant]
  8. PEPCID [Concomitant]
  9. TOPROL-XL [Concomitant]

REACTIONS (12)
  - BLOOD ALBUMIN DECREASED [None]
  - BLOOD ALKALINE PHOSPHATASE INCREASED [None]
  - BLOOD CREATINE INCREASED [None]
  - BLOOD UREA INCREASED [None]
  - CALCIUM IONISED INCREASED [None]
  - CYTOMEGALOVIRUS TEST POSITIVE [None]
  - DIARRHOEA HAEMORRHAGIC [None]
  - GASTRITIS [None]
  - HAEMORRHOIDS [None]
  - OCCULT BLOOD POSITIVE [None]
  - OESOPHAGITIS [None]
  - PROTEIN TOTAL DECREASED [None]
